FAERS Safety Report 8177199-7 (Version None)
Quarter: 2012Q1

REPORT INFORMATION
  Report Type: 
  Country: None (occurrence: None)
  Receive Date: 20120301
  Receipt Date: 20120220
  Transmission Date: 20120608
  Serious: Yes (Other)
  Sender: FDA-Public Use
  Company Number: FR-JNJFOC-20120210895

PATIENT
  Age: 41 Year
  Sex: Female

DRUGS (13)
  1. METHOTREXATE [Concomitant]
     Indication: TAKAYASU'S ARTERITIS
     Route: 048
     Dates: start: 20020101, end: 20060101
  2. REMICADE [Suspect]
     Route: 042
  3. AMLODIPINE BESYLATE [Concomitant]
  4. PREDNISONE TAB [Concomitant]
     Indication: TAKAYASU'S ARTERITIS
  5. CALCIUM CARBONATE [Concomitant]
  6. FOLIC ACID [Concomitant]
  7. IRBESARTAN [Concomitant]
     Dosage: DOSE REPORTED AS ^150/12.5 MG, 1 DF QPM^
  8. REMICADE [Suspect]
     Indication: TAKAYASU'S ARTERITIS
     Route: 042
     Dates: start: 20111025, end: 20111222
  9. BISOPROLOL FUMARATE [Concomitant]
  10. METHOTREXATE [Concomitant]
     Route: 048
  11. VITAMIN D [Concomitant]
  12. ASPIRIN [Concomitant]
  13. DIANE [Concomitant]
     Dosage: DOSE REPORTED AS ^35 1DF APM^

REACTIONS (7)
  - HEADACHE [None]
  - URTICARIA [None]
  - CHEST DISCOMFORT [None]
  - ICHTHYOSIS ACQUIRED [None]
  - MYALGIA [None]
  - ASTHENIA [None]
  - VIRAL INFECTION [None]
